APPROVED DRUG PRODUCT: ACYCLOVIR
Active Ingredient: ACYCLOVIR
Strength: 200MG
Dosage Form/Route: CAPSULE;ORAL
Application: A201445 | Product #001 | TE Code: AB
Applicant: CADILA PHARMACEUTICALS LTD
Approved: Mar 6, 2014 | RLD: No | RS: No | Type: RX